FAERS Safety Report 16804382 (Version 5)
Quarter: 2019Q4

REPORT INFORMATION
  Report Type: Spontaneous
  Country: US (occurrence: US)
  Receive Date: 20190913
  Receipt Date: 20191114
  Transmission Date: 20200122
  Serious: No
  Sender: FDA-Public Use
  Company Number: US-PFIZER INC-2019391902

PATIENT
  Age: 53 Year
  Sex: Female

DRUGS (1)
  1. METHOTREXATE SODIUM. [Suspect]
     Active Substance: METHOTREXATE SODIUM
     Indication: RHEUMATOID ARTHRITIS
     Dosage: 7.5 MG, WEEKLY [ONCE A WEEK]

REACTIONS (7)
  - Nausea [Unknown]
  - Drug ineffective [Unknown]
  - Vomiting [Unknown]
  - Alopecia [Unknown]
  - Feeling of body temperature change [Unknown]
  - Stomatitis [Unknown]
  - Swelling [Unknown]
